FAERS Safety Report 10744444 (Version 2)
Quarter: 2015Q2

REPORT INFORMATION
  Report Type: Spontaneous
  Country: JP (occurrence: JP)
  Receive Date: 20150128
  Receipt Date: 20150414
  Transmission Date: 20150821
  Serious: No
  Sender: FDA-Public Use
  Company Number: JP-EISAI-201407779

PATIENT
  Age: 82 Year
  Sex: Female

DRUGS (11)
  1. MAINTATE [Concomitant]
     Active Substance: BISOPROLOL FUMARATE
  2. CARDENALIN [Concomitant]
     Active Substance: DOXAZOSIN MESYLATE
  3. MAGLAX [Concomitant]
     Active Substance: MAGNESIUM OXIDE
  4. LUNESTA [Suspect]
     Active Substance: ESZOPICLONE
     Indication: INSOMNIA
     Route: 048
     Dates: start: 20150106, end: 20150108
  5. IRBESARTAN. [Concomitant]
     Active Substance: IRBESARTAN
  6. ALL OTHER THERAPEUTIC PRODUCTS [Concomitant]
     Active Substance: UNSPECIFIED INGREDIENT
  7. LASIX [Concomitant]
     Active Substance: FUROSEMIDE
  8. AMLODIPINE [Concomitant]
     Active Substance: AMLODIPINE BESYLATE
  9. PANALDINE [Concomitant]
     Active Substance: TICLOPIDINE HYDROCHLORIDE
  10. RABEPRAZOLE [Concomitant]
     Active Substance: RABEPRAZOLE
  11. MOSAPRIDE [Concomitant]
     Active Substance: MOSAPRIDE

REACTIONS (6)
  - Restlessness [Recovered/Resolved]
  - Mental status changes [None]
  - Abnormal behaviour [Recovered/Resolved]
  - Irritability [None]
  - Somnambulism [None]
  - Hallucination [Recovered/Resolved]

NARRATIVE: CASE EVENT DATE: 20150106
